FAERS Safety Report 5961172-0 (Version None)
Quarter: 2008Q4

REPORT INFORMATION
  Report Type: 
  Country: None (occurrence: None)
  Receive Date: 20081121
  Receipt Date: 20081113
  Transmission Date: 20090506
  Serious: Yes (Death, Other)
  Sender: FDA-Public Use
  Company Number: US-BIOGENIDEC-2008BI014292

PATIENT
  Age: 0 Year
  Sex: Male
  Weight: 1 kg

DRUGS (1)
  1. AVONEX [Suspect]
     Indication: DRUG EXPOSURE DURING PREGNANCY
     Route: 064
     Dates: start: 19970801, end: 20030301

REACTIONS (2)
  - ENTERITIS INFECTIOUS [None]
  - GASTROINTESTINAL INFECTION [None]
